FAERS Safety Report 4728120-2 (Version None)
Quarter: 2005Q3

REPORT INFORMATION
  Report Type: 
  Country: None (occurrence: None)
  Receive Date: 20050729
  Receipt Date: 20050725
  Transmission Date: 20060218
  Serious: Yes (Other)
  Sender: FDA-Public Use
  Company Number: US-SP-2005-01429

PATIENT
  Sex: Female

DRUGS (1)
  1. TUBERSOL [Suspect]
     Indication: TUBERCULIN TEST
     Route: 023
     Dates: start: 20050603

REACTIONS (5)
  - EYE ROLLING [None]
  - LETHARGY [None]
  - MUSCULOSKELETAL STIFFNESS [None]
  - NAUSEA [None]
  - TREMOR [None]
